FAERS Safety Report 20280135 (Version 1)
Quarter: 2022Q1

REPORT INFORMATION
  Report Type: Spontaneous
  Country: RO (occurrence: RO)
  Receive Date: 20220103
  Receipt Date: 20220103
  Transmission Date: 20220424
  Serious: Yes (Hospitalization)
  Sender: FDA-Public Use
  Company Number: RO-ALKEM LABORATORIES LIMITED-RO-ALKEM-2021-06248

PATIENT
  Sex: Female

DRUGS (6)
  1. SIROLIMUS [Suspect]
     Active Substance: SIROLIMUS
     Indication: Product used for unknown indication
     Dosage: 0.5 MILLIGRAM/SQ. METER
     Route: 065
  2. SIROLIMUS [Suspect]
     Active Substance: SIROLIMUS
     Dosage: 0.4 MILLIGRAM/SQ. METER
     Route: 065
  3. SIROLIMUS [Suspect]
     Active Substance: SIROLIMUS
     Dosage: 0.3 MILLIGRAM/SQ. METER
     Route: 065
  4. SIROLIMUS [Suspect]
     Active Substance: SIROLIMUS
     Dosage: 0.2 MILLIGRAM/SQ. METER
     Route: 065
  5. PROPRANOLOL [Suspect]
     Active Substance: PROPRANOLOL HYDROCHLORIDE
     Indication: Product used for unknown indication
     Dosage: 3 MILLIGRAM/KILOGRAM, QD
     Route: 065
  6. PROPRANOLOL [Suspect]
     Active Substance: PROPRANOLOL HYDROCHLORIDE
     Dosage: 0.5 MILLIGRAM/KILOGRAM, QD
     Route: 065

REACTIONS (1)
  - Hypertriglyceridaemia [Unknown]
